FAERS Safety Report 6663058-5 (Version None)
Quarter: 2010Q1

REPORT INFORMATION
  Report Type: 
  Country: None (occurrence: None)
  Receive Date: 20100329
  Receipt Date: 20090226
  Transmission Date: 20100710
  Serious: Yes (Life-Threatening, Hospitalization)
  Sender: FDA-Public Use
  Company Number: 2009EN000043

PATIENT
  Age: 77 Year
  Sex: Female
  Weight: 57 kg

DRUGS (17)
  1. ONCASPAR [Suspect]
     Indication: ACUTE LYMPHOCYTIC LEUKAEMIA
     Dosage: 3961 IU;X1;IV
     Route: 042
     Dates: start: 20090210, end: 20090210
  2. VINCRISTINE [Concomitant]
  3. ONDANSETRON [Concomitant]
  4. CEFTAZIDIME [Concomitant]
  5. ENOXAPARIN SODIUM [Concomitant]
  6. NYSTATIN [Concomitant]
  7. PREDNISONE TAB [Concomitant]
  8. PANTOPRAZOLE [Concomitant]
  9. MULTI-VITAMINS [Concomitant]
  10. FENOFIBRATE [Concomitant]
  11. ALLOPURINOL [Concomitant]
  12. TRIAMCINOLONE [Concomitant]
  13. ZOLPIDEM [Concomitant]
  14. SENNA [Concomitant]
  15. DOCUSATE [Concomitant]
  16. BISACODYL [Concomitant]
  17. ACETAMINOPHEN [Concomitant]

REACTIONS (2)
  - BLOOD BILIRUBIN INCREASED [None]
  - LIVER FUNCTION TEST ABNORMAL [None]
